FAERS Safety Report 21443372 (Version 2)
Quarter: 2022Q4

REPORT INFORMATION
  Report Type: Spontaneous
  Country: CA (occurrence: CA)
  Receive Date: 20221012
  Receipt Date: 20221024
  Transmission Date: 20230113
  Serious: Yes (Disabling)
  Sender: FDA-Public Use
  Company Number: CA-NOVARTISPH-NVSC2022CA229753

PATIENT

DRUGS (1)
  1. XIIDRA [Suspect]
     Active Substance: LIFITEGRAST
     Indication: Product used for unknown indication
     Dosage: UNK
     Route: 065

REACTIONS (2)
  - Sjogren^s syndrome [Unknown]
  - Fibromyalgia [Unknown]
